FAERS Safety Report 18341104 (Version 1)
Quarter: 2020Q4

REPORT INFORMATION
  Report Type: Spontaneous
  Country: CN (occurrence: CN)
  Receive Date: 20201003
  Receipt Date: 20201003
  Transmission Date: 20210113
  Serious: No
  Sender: FDA-Public Use
  Company Number: CN-LUPIN PHARMACEUTICALS INC.-2020-03286

PATIENT
  Age: 19 Year
  Sex: Female

DRUGS (3)
  1. INTERFERON ALFA-1B [Concomitant]
     Active Substance: INTERFERON ALFA-1B
     Dosage: ADMINISTERED ONCE WEEKLY FROM SECOND TO EIGHTH WEEK; ADMINISTERED TOTAL 9 DOSES
     Route: 026
  2. INTERFERON ALFA-1B [Concomitant]
     Active Substance: INTERFERON ALFA-1B
     Indication: PSEUDOLYMPHOMA
     Dosage: ADMINISTERED TWICE WEEKLY (3 MILLION U/ML IN SALINE AT 0.2-0.5 ML/DOSE) IN FIRST WEEK
     Route: 026
  3. BETAMETHASONE. [Suspect]
     Active Substance: BETAMETHASONE
     Indication: PSEUDOLYMPHOMA
     Dosage: ADMINISTERED EVERY 3 WEEKS (7 MG/ML SOLUTION AT 0.2-0.5 ML/DOSE); ADMINISTERED 3 DOSES
     Route: 026

REACTIONS (2)
  - Telangiectasia [Unknown]
  - Pigmentation disorder [Unknown]
